FAERS Safety Report 5830457-0 (Version None)
Quarter: 2008Q3

REPORT INFORMATION
  Report Type: 
  Country: None (occurrence: None)
  Receive Date: 20080801
  Receipt Date: 20080718
  Transmission Date: 20090109
  Serious: Yes (Hospitalization)
  Sender: FDA-Public Use
  Company Number: JP-GENENTECH-259551

PATIENT
  Sex: Female

DRUGS (17)
  1. TRASTUZUMAB [Suspect]
     Indication: BREAST CANCER METASTATIC
     Dosage: 186 MG, QD
     Route: 042
     Dates: start: 20070319
  2. TAXOTERE [Suspect]
     Indication: BREAST CANCER METASTATIC
     Dosage: 85 MG, Q3W
     Route: 042
     Dates: start: 20070329
  3. SEPAZON [Suspect]
     Indication: DEPRESSION
     Dosage: 1 MG, TID
     Route: 048
  4. TAGAMET [Suspect]
     Indication: GASTRIC ULCER
     Dosage: 800 MG, QD
     Route: 048
  5. DOXAZOSIN MESYLATE [Suspect]
     Indication: HYPERTENSION
     Dosage: 2 MG, QD
     Route: 048
  6. NORVASC [Suspect]
     Indication: HYPERTENSION
     Dosage: 5 MG, QD
     Route: 048
  7. DEPAS [Suspect]
     Indication: HYPOAESTHESIA
     Dosage: 0.5 MG, QD
     Route: 048
     Dates: start: 20070811
  8. ACETAMINOPHEN [Suspect]
     Indication: HEADACHE
     Dosage: 400 MG, QD
     Route: 048
  9. DECADRON [Suspect]
     Indication: PREMEDICATION
     Dosage: 8 MG, QD
     Route: 050
     Dates: start: 20070329
  10. LENDORMIN [Suspect]
     Indication: SLEEP DISORDER
     Dosage: 0.25 MG, QD
     Route: 048
     Dates: start: 20070510
  11. ASTHMA MEDICATION [Suspect]
     Indication: ASTHMA
     Dosage: 125 MG, QD
     Route: 048
  12. LOXOPROFEN [Suspect]
     Indication: HYPOAESTHESIA
     Dosage: 60 MG, QD
     Route: 048
     Dates: start: 20070714
  13. DESYREL [Concomitant]
     Indication: DRUG USE FOR UNKNOWN INDICATION
     Dosage: UNK, UNK
     Dates: start: 20070614
  14. ROHYPNOL [Concomitant]
     Indication: DRUG USE FOR UNKNOWN INDICATION
     Dosage: UNK, UNK
     Dates: start: 20070510
  15. CIPROFLOXACIN HCL [Concomitant]
     Indication: DRUG USE FOR UNKNOWN INDICATION
  16. RIVOTRIL [Concomitant]
     Indication: DRUG USE FOR UNKNOWN INDICATION
     Dates: start: 20070531, end: 20070614
  17. PARIET [Concomitant]
     Indication: DRUG USE FOR UNKNOWN INDICATION
     Dates: start: 20070831, end: 20071226

REACTIONS (1)
  - ENTEROCOLITIS [None]
